FAERS Safety Report 8486662-0 (Version None)
Quarter: 2012Q3

REPORT INFORMATION
  Report Type: 
  Country: None (occurrence: None)
  Receive Date: 20120703
  Receipt Date: 20120624
  Transmission Date: 20120928
  Serious: Yes (Hospitalization)
  Sender: FDA-Public Use
  Company Number: US-ABBOTT-12P-163-0949880-00

PATIENT
  Age: 49 Year
  Sex: Female

DRUGS (6)
  1. OTC STOOL SOFTENER [Concomitant]
     Indication: CONSTIPATION
  2. HUMIRA [Suspect]
     Indication: CROHN'S DISEASE
     Dates: start: 20120420
  3. VITAMIN B-12 [Concomitant]
     Indication: VITAMIN SUPPLEMENTATION
  4. TRAMADOL HCL [Concomitant]
     Indication: PAIN
     Dosage: 2 X 50 MG EVERY 4 HOURS AS NEEDED
  5. WARFARIN SODIUM [Concomitant]
     Indication: THROMBOSIS
  6. HALCION [Concomitant]
     Indication: INSOMNIA
     Dosage: AT HOUR OF SLEEP

REACTIONS (4)
  - INTESTINAL OBSTRUCTION [None]
  - DRUG INEFFECTIVE [None]
  - BLOOD PRESSURE INCREASED [None]
  - WEIGHT INCREASED [None]
